FAERS Safety Report 21305278 (Version 2)
Quarter: 2022Q4

REPORT INFORMATION
  Report Type: Report from Study
  Country: CN (occurrence: CN)
  Receive Date: 20220907
  Receipt Date: 20221120
  Transmission Date: 20230113
  Serious: Yes (Hospitalization, Other)
  Sender: FDA-Public Use
  Company Number: CN-BRISTOL-MYERS SQUIBB COMPANY-2022-079051

PATIENT
  Age: 61 Year
  Sex: Female
  Weight: 67.5 kg

DRUGS (21)
  1. AZACITIDINE [Suspect]
     Active Substance: AZACITIDINE
     Indication: Acute myeloid leukaemia
     Route: 058
     Dates: start: 20220709, end: 20220715
  2. VENETOCLAX [Suspect]
     Active Substance: VENETOCLAX
     Indication: Acute myeloid leukaemia
     Dosage: 100 MG (100 MG,-
     Route: 048
     Dates: start: 20220709, end: 20220709
  3. VENETOCLAX [Suspect]
     Active Substance: VENETOCLAX
     Dosage: 1 IN 1 D
     Route: 048
     Dates: start: 20220710, end: 20220710
  4. VENETOCLAX [Suspect]
     Active Substance: VENETOCLAX
     Dosage: 200 MG,1 IN 1 D
     Route: 048
     Dates: start: 20220711, end: 20220716
  5. HUMAN RED BLOOD CELL [Concomitant]
     Active Substance: HUMAN RED BLOOD CELL
     Indication: Transfusion
     Route: 065
     Dates: start: 20220705, end: 20220705
  6. HUMAN RED BLOOD CELL [Concomitant]
     Active Substance: HUMAN RED BLOOD CELL
     Route: 065
     Dates: start: 20220709, end: 20220709
  7. HUMAN RED BLOOD CELL [Concomitant]
     Active Substance: HUMAN RED BLOOD CELL
     Route: 065
     Dates: start: 20220715, end: 20220715
  8. PLATELETS [Concomitant]
     Active Substance: HUMAN PLATELET, ALLOGENIC
     Indication: Transfusion
     Dosage: 1 UNIT
     Route: 065
     Dates: start: 20220708, end: 20220708
  9. PLATELETS [Concomitant]
     Active Substance: HUMAN PLATELET, ALLOGENIC
     Dosage: 1 UNIT
     Route: 065
     Dates: start: 20220714, end: 20220714
  10. ALLOPURINOL [Concomitant]
     Active Substance: ALLOPURINOL
     Indication: Tumour lysis syndrome
     Route: 048
     Dates: start: 20220708, end: 20220716
  11. VITAMIN K1 [Concomitant]
     Active Substance: PHYTONADIONE
     Indication: Haemostasis
     Dosage: 1 IN 1 D
     Route: 041
     Dates: start: 20220629, end: 20220716
  12. ETHAMSYLATE [Concomitant]
     Active Substance: ETHAMSYLATE
     Indication: Haemostasis
     Dosage: 1 IN 1 D
     Route: 041
     Dates: start: 20220709, end: 20220716
  13. POTASSIUM CHLORIDE [Concomitant]
     Active Substance: POTASSIUM CHLORIDE
     Indication: Mineral supplementation
     Dosage: 1 IN 1 D
     Route: 041
     Dates: start: 20220702, end: 20220716
  14. POTASSIUM CHLORIDE [Concomitant]
     Active Substance: POTASSIUM CHLORIDE
     Dosage: 2 IN 1 D
     Route: 048
     Dates: start: 20220703, end: 20220708
  15. POTASSIUM CHLORIDE [Concomitant]
     Active Substance: POTASSIUM CHLORIDE
     Dosage: 1 IN 1 D
     Route: 041
     Dates: start: 20220709, end: 20220716
  16. POTASSIUM CHLORIDE [Concomitant]
     Active Substance: POTASSIUM CHLORIDE
     Dosage: 1 IN 1 D
     Route: 041
     Dates: start: 20220711, end: 20220716
  17. HYDROXYUREA [Concomitant]
     Active Substance: HYDROXYUREA
     Indication: White blood cell count decreased
     Dosage: 3 IN 1 D
     Route: 048
     Dates: start: 20220704, end: 20220708
  18. HYDROXYUREA [Concomitant]
     Active Substance: HYDROXYUREA
     Dosage: 3 IN 1 D
     Route: 048
     Dates: start: 20220708, end: 20220709
  19. RACEANISODAMINE HYDROCHLORIDE [Concomitant]
     Indication: Pain
     Dosage: 1 ONCE
     Route: 030
     Dates: start: 20220702, end: 20220702
  20. DEXAMETHASONE SODIUM PHOSPHATE [Concomitant]
     Active Substance: DEXAMETHASONE SODIUM PHOSPHATE
     Indication: Hypersensitivity
     Dosage: 1 ONCE
     Route: 042
     Dates: start: 20220708, end: 20220708
  21. PHYTONADIONE [Concomitant]
     Active Substance: PHYTONADIONE
     Indication: Haemostasis
     Route: 041
     Dates: start: 20220629, end: 20220716

REACTIONS (3)
  - Tuberculosis [Not Recovered/Not Resolved]
  - Full blood count decreased [Unknown]
  - Constipation [Unknown]

NARRATIVE: CASE EVENT DATE: 20220709
